FAERS Safety Report 16094124 (Version 1)
Quarter: 2019Q1

REPORT INFORMATION
  Report Type: Spontaneous
  Country: US (occurrence: US)
  Receive Date: 20190218
  Receipt Date: 20190218
  Transmission Date: 20190418
  Serious: Yes (Hospitalization)
  Sender: FDA-Public Use
  Company Number: None

PATIENT
  Age: 73 Year
  Sex: Female

DRUGS (1)
  1. NEORAL [Suspect]
     Active Substance: CYCLOSPORINE
     Indication: LIVER TRANSPLANT
     Route: 048
     Dates: start: 20140508

REACTIONS (5)
  - Pulmonary congestion [None]
  - Dehydration [None]
  - Fatigue [None]
  - Asthenia [None]
  - Nasopharyngitis [None]

NARRATIVE: CASE EVENT DATE: 2019
